FAERS Safety Report 6381231-0 (Version None)
Quarter: 2009Q3

REPORT INFORMATION
  Report Type: 
  Country: None (occurrence: None)
  Receive Date: 20090929
  Receipt Date: 20090921
  Transmission Date: 20100115
  Serious: Yes (Other)
  Sender: FDA-Public Use
  Company Number: GB-ABBOTT-09P-167-0598173-00

PATIENT
  Age: 73 Year
  Sex: Male

DRUGS (3)
  1. CLARITHROMYCIN [Suspect]
     Indication: DRUG USE FOR UNKNOWN INDICATION
     Dates: start: 20061101
  2. RIFABUTIN [Suspect]
     Indication: DRUG USE FOR UNKNOWN INDICATION
     Dates: start: 20061101
  3. ITRACONAZOLE [Suspect]
     Indication: DRUG USE FOR UNKNOWN INDICATION
     Dates: start: 20061101

REACTIONS (2)
  - DRUG INTERACTION [None]
  - UVEITIS [None]
